FAERS Safety Report 8586670 (Version 3)
Quarter: 2015Q2

REPORT INFORMATION
  Report Type: Report from Study
  Country: CN (occurrence: CN)
  Receive Date: 20120530
  Receipt Date: 20150409
  Transmission Date: 20150821
  Serious: Yes (Hospitalization)
  Sender: FDA-Public Use
  Company Number: CN-ROCHE-1069466

PATIENT
  Age: 30 Year
  Sex: Female
  Weight: 52 kg

DRUGS (6)
  1. TRASTUZUMAB [Suspect]
     Active Substance: TRASTUZUMAB
     Indication: HER-2 POSITIVE BREAST CANCER
     Dosage: LOADING DOSE
     Route: 042
     Dates: start: 20120322
  2. TRASTUZUMAB [Suspect]
     Active Substance: TRASTUZUMAB
     Dosage: MAINTENANCE DOSE ?DATE OF LAST DOSE PRIOR TO SAE : 09/MAY/2012
     Route: 042
     Dates: end: 20120520
  3. PACLITAXEL. [Suspect]
     Active Substance: PACLITAXEL
     Indication: HER-2 POSITIVE BREAST CANCER
     Dosage: LAST DOSE PRIOR TO SAE: 21/APR/2012
     Route: 042
     Dates: start: 20120323, end: 20120428
  4. PACLITAXEL. [Suspect]
     Active Substance: PACLITAXEL
     Route: 042
     Dates: end: 20120520
  5. CARBOPLATIN. [Suspect]
     Active Substance: CARBOPLATIN
     Dosage: LAST DOSE PRIOR TO SAE: 21/APR/2012
     Route: 042
     Dates: end: 20120520
  6. CARBOPLATIN. [Suspect]
     Active Substance: CARBOPLATIN
     Indication: BREAST CANCER
     Dosage: LAST DOSE PRIOR TO SAE : 21/APR/2012
     Route: 042
     Dates: start: 20120323, end: 20120428

REACTIONS (1)
  - Pneumonia [Not Recovered/Not Resolved]

NARRATIVE: CASE EVENT DATE: 20120510
